FAERS Safety Report 16424747 (Version 3)
Quarter: 2019Q3

REPORT INFORMATION
  Report Type: Spontaneous
  Country: BR (occurrence: BR)
  Receive Date: 20190613
  Receipt Date: 20190823
  Transmission Date: 20191004
  Serious: Yes (Death, Hospitalization, Other)
  Sender: FDA-Public Use
  Company Number: BR-ABBVIE-19P-020-2818908-00

PATIENT
  Age: 79 Year
  Sex: Female

DRUGS (12)
  1. DEPAKOTE ER [Suspect]
     Active Substance: DIVALPROEX SODIUM
     Dosage: DOSE WAS INCREASED DUE PERSISTENT CRISIS; FORM STRENGTH 250MG AT NIGHT AND 500MG MORNING
     Route: 048
  2. DEPAKOTE ER [Suspect]
     Active Substance: DIVALPROEX SODIUM
     Dosage: DAILY DOSE: 1500MG; AT 9:00 AND 21:00; 250MG AND 500MG ADMINISTERED TOGETHER
     Route: 048
  3. DEPAKENE [Suspect]
     Active Substance: VALPROIC ACID
     Indication: PRODUCT USED FOR UNKNOWN INDICATION
     Route: 065
     Dates: start: 20190509
  4. ZETSIM [Concomitant]
     Active Substance: EZETIMIBE\SIMVASTATIN
     Indication: BLOOD CHOLESTEROL ABNORMAL
     Dosage: DAILY DOSE: 1 TABLET, AT NIGHT; STRENGTH: 10/20MG
     Route: 048
  5. ZETSIM [Concomitant]
     Active Substance: EZETIMIBE\SIMVASTATIN
     Indication: BLOOD TRIGLYCERIDES ABNORMAL
  6. LAMITOR [Concomitant]
     Active Substance: LAMOTRIGINE
     Indication: PRODUCT USED FOR UNKNOWN INDICATION
     Dosage: DURING THE DAY
     Dates: start: 201812
  7. NEXIUM [Concomitant]
     Active Substance: ESOMEPRAZOLE MAGNESIUM
     Indication: GASTROOESOPHAGEAL REFLUX DISEASE
     Dosage: IN FASTING; TOOK THIS MEDICINE UNTIL THE DAY OF THE DEATH
     Route: 048
     Dates: start: 201801, end: 20190529
  8. SEEBRI [Concomitant]
     Active Substance: GLYCOPYRROLATE
     Indication: CHRONIC OBSTRUCTIVE PULMONARY DISEASE
     Dosage: AT 2:00 PM
     Route: 048
     Dates: start: 2013
  9. DEPAKOTE ER [Suspect]
     Active Substance: DIVALPROEX SODIUM
     Indication: SEIZURE
     Dosage: AT NIGHT; THIS DOSE GOT INCREASED BECAUSE OF DISCONTINUATION OF LAMITOR AND MEMORY LOSS
     Route: 048
     Dates: start: 201812
  10. XARELTO [Concomitant]
     Active Substance: RIVAROXABAN
     Indication: CEREBROVASCULAR ACCIDENT
     Dosage: AT NIGHT
     Route: 048
     Dates: start: 2015
  11. ALENIA [Concomitant]
     Indication: CHRONIC OBSTRUCTIVE PULMONARY DISEASE
     Dosage: AT 8:00 AND 20:00; START DATE AROUND 6 YEARS AGO
     Route: 048
     Dates: start: 2013
  12. ROCEFIN [Concomitant]
     Active Substance: CEFTRIAXONE SODIUM
     Indication: PRODUCT USED FOR UNKNOWN INDICATION

REACTIONS (14)
  - Malaise [Unknown]
  - Product complaint [Unknown]
  - Malaise [Unknown]
  - Aspiration [Unknown]
  - Inappropriate schedule of product administration [Unknown]
  - Hypersensitivity [Unknown]
  - Amnesia [Unknown]
  - Vomiting [Recovered/Resolved]
  - Sepsis [Fatal]
  - Abdominal pain [Unknown]
  - Seizure [Recovered/Resolved]
  - Choking [Unknown]
  - Incorrect route of product administration [Unknown]
  - Product use complaint [Unknown]

NARRATIVE: CASE EVENT DATE: 201812
